FAERS Safety Report 4479002-5 (Version None)
Quarter: 2004Q4

REPORT INFORMATION
  Report Type: 
  Country: None (occurrence: None)
  Receive Date: 20041015
  Receipt Date: 20041004
  Transmission Date: 20050328
  Serious: Yes (Life-Threatening)
  Sender: FDA-Public Use
  Company Number: URSO-2004-016

PATIENT
  Age: 73 Year
  Sex: Female

DRUGS (3)
  1. URSO 100 (URSODEOXYCHOLIC ACID) [Suspect]
     Indication: CHRONIC HEPATITIS
     Dosage: 600 MG PO
     Route: 048
     Dates: start: 20040117, end: 20040802
  2. SHOUSAIKOTOU [Suspect]
     Indication: CHRONIC HEPATITIS
     Dosage: 7.5 G PO
     Route: 048
     Dates: start: 20040521, end: 20040802
  3. ROCEPHIN [Suspect]
     Indication: PYELONEPHRITIS ACUTE
     Dosage: 2 G IV
     Route: 042
     Dates: start: 20040723, end: 20040802

REACTIONS (5)
  - INTERSTITIAL LUNG DISEASE [None]
  - LYMPHOCYTE STIMULATION TEST POSITIVE [None]
  - OXYGEN SATURATION DECREASED [None]
  - PNEUMONITIS [None]
  - PYELONEPHRITIS ACUTE [None]
